FAERS Safety Report 4412959-7 (Version None)
Quarter: 2004Q3

REPORT INFORMATION
  Report Type: 
  Country: None (occurrence: None)
  Receive Date: 20040802
  Receipt Date: 20031111
  Transmission Date: 20050211
  Serious: No
  Sender: FDA-Public Use
  Company Number: US-GLAXOSMITHKLINE-A0439261A

PATIENT
  Age: 6 Week
  Sex: Female

DRUGS (2)
  1. ZANTAC [Suspect]
     Dosage: .8ML TWICE PER DAY
     Route: 048
  2. GRIPE WATER [Suspect]

REACTIONS (1)
  - LETHARGY [None]
